FAERS Safety Report 5222816-4 (Version None)
Quarter: 2007Q1

REPORT INFORMATION
  Report Type: 
  Country: None (occurrence: None)
  Receive Date: 20070129
  Receipt Date: 20070118
  Transmission Date: 20070707
  Serious: Yes (Death, Hospitalization, Other)
  Sender: FDA-Public Use
  Company Number: FR-GLAXOSMITHKLINE-B0446150A

PATIENT
  Age: 88 Year
  Sex: Female
  Weight: 90 kg

DRUGS (6)
  1. ARIXTRA [Suspect]
     Route: 058
     Dates: start: 20061001, end: 20061017
  2. PREVISCAN [Suspect]
     Dosage: .5UNIT PER DAY
     Route: 048
     Dates: start: 20061016, end: 20061017
  3. NORSET [Concomitant]
     Dosage: 15MG PER DAY
     Route: 048
     Dates: start: 20061009, end: 20061025
  4. FUROSEMIDE [Concomitant]
     Dosage: 80MG PER DAY
     Route: 048
     Dates: start: 20060928, end: 20061025
  5. TRIATEC [Concomitant]
     Dosage: 2.5MG PER DAY
     Route: 048
     Dates: start: 20060928, end: 20061025
  6. DAFALGAN [Concomitant]
     Indication: PAIN
     Dosage: 4G PER DAY
     Route: 048
     Dates: start: 20061005, end: 20061025

REACTIONS (6)
  - HAEMATOMA INFECTION [None]
  - HEPARIN-INDUCED THROMBOCYTOPENIA [None]
  - HYPERTHERMIA [None]
  - INCISION SITE HAEMORRHAGE [None]
  - POST PROCEDURAL HAEMATOMA [None]
  - STAPHYLOCOCCAL SEPSIS [None]
